FAERS Safety Report 5523642-9 (Version None)
Quarter: 2007Q4

REPORT INFORMATION
  Report Type: 
  Country: None (occurrence: None)
  Receive Date: 20071121
  Receipt Date: 20071113
  Transmission Date: 20080405
  Serious: No
  Sender: FDA-Public Use
  Company Number: US-BAXTER-2007BH009162

PATIENT
  Age: 70 Year
  Sex: Male

DRUGS (4)
  1. DEXAMETHASONE [Suspect]
     Indication: MULTIPLE MYELOMA
     Dosage: DOSE UNIT:UNKNOWN
     Route: 065
  2. CYTOXAN [Suspect]
     Indication: MULTIPLE MYELOMA
     Dosage: DOSE UNIT:UNKNOWN
     Route: 065
  3. THALOMID [Suspect]
     Indication: MULTIPLE MYELOMA
     Route: 048
     Dates: start: 20030908, end: 20040301
  4. THALOMID [Suspect]
     Route: 048
     Dates: start: 20040408, end: 20061001

REACTIONS (1)
  - PSORIASIS [None]
